FAERS Safety Report 10098033 (Version 1)
Quarter: 2014Q2

REPORT INFORMATION
  Report Type: Spontaneous
  Country: US (occurrence: US)
  Receive Date: 20140423
  Receipt Date: 20140423
  Transmission Date: 20141212
  Serious: No
  Sender: FDA-Public Use
  Company Number: US-B.I. PHARMACEUTICALS,INC./RIDGEFIELD-2014-BI-16731BP

PATIENT
  Age: 54 Year
  Sex: Male
  Weight: 148 kg

DRUGS (10)
  1. TRADJENTA [Suspect]
     Indication: DIABETES MELLITUS
     Dosage: 5 MG
     Route: 048
     Dates: start: 2013
  2. SPIRIVA [Suspect]
     Indication: CHRONIC OBSTRUCTIVE PULMONARY DISEASE
     Dosage: 18 MCG
     Route: 055
     Dates: start: 2012
  3. METFORMIN [Concomitant]
     Indication: DIABETES MELLITUS
     Dosage: 2000 MG
     Route: 048
  4. GLYBURIDE [Concomitant]
     Indication: DIABETES MELLITUS
     Dosage: 10 MG
     Route: 048
  5. ASPIRIN [Concomitant]
     Dosage: 81 MG
     Route: 048
  6. FUROSEMIDE [Concomitant]
     Indication: FLUID RETENTION
     Dosage: 40 MG
     Route: 048
  7. POTASSIUM CHLORIDE [Concomitant]
     Indication: FLUID RETENTION
     Dosage: 1000 MG
     Route: 048
  8. ADVAIR [Concomitant]
     Indication: CHRONIC OBSTRUCTIVE PULMONARY DISEASE
     Dosage: (INHALATION SPRAY) STRENGTH: 250/50 MCG; DAILY DOSE: 500/100 MCG
     Route: 055
  9. VENTOLIN [Concomitant]
     Indication: CHRONIC OBSTRUCTIVE PULMONARY DISEASE
     Route: 055
  10. COREG [Concomitant]
     Indication: HYPERTENSION
     Dosage: 3.125 MG
     Route: 048

REACTIONS (1)
  - Blood glucose increased [Not Recovered/Not Resolved]
